FAERS Safety Report 11404419 (Version 1)
Quarter: 2015Q3

REPORT INFORMATION
  Report Type: Spontaneous
  Country: US (occurrence: US)
  Receive Date: 20150821
  Receipt Date: 20150821
  Transmission Date: 20151125
  Serious: Yes (Disabling)
  Sender: FDA-Public Use
  Company Number: US-BAYER-2015-404530

PATIENT
  Age: 25 Year
  Sex: Female

DRUGS (1)
  1. MIRENA [Suspect]
     Active Substance: LEVONORGESTREL
     Dosage: 20 MCG/24HR, CONT
     Route: 015
     Dates: start: 201501, end: 20150223

REACTIONS (10)
  - Anxiety [None]
  - Physical disability [None]
  - Ectopic pregnancy with contraceptive device [None]
  - Anhedonia [None]
  - Drug ineffective [None]
  - Device dislocation [None]
  - Pain [None]
  - Emotional distress [None]
  - Deformity [None]
  - Fear of disease [None]

NARRATIVE: CASE EVENT DATE: 20150223
